FAERS Safety Report 15963844 (Version 2)
Quarter: 2019Q1

REPORT INFORMATION
  Report Type: Report from Study
  Country: US (occurrence: US)
  Receive Date: 20190214
  Receipt Date: 20190306
  Transmission Date: 20190417
  Serious: Yes (Hospitalization)
  Sender: FDA-Public Use
  Company Number: US-ACTELION-A-US2018-180655

PATIENT
  Age: 48 Year
  Sex: Female
  Weight: 128.8 kg

DRUGS (7)
  1. UPTRAVI [Suspect]
     Active Substance: SELEXIPAG
     Indication: PULMONARY ARTERIAL HYPERTENSION
     Dosage: 1600 MCG, BID
     Route: 048
     Dates: start: 20180419, end: 20190129
  2. LASIX [Concomitant]
     Active Substance: FUROSEMIDE
  3. ADCIRCA [Concomitant]
     Active Substance: TADALAFIL
  4. VELETRI [Concomitant]
     Active Substance: EPOPROSTENOL
     Indication: PULMONARY ARTERIAL HYPERTENSION
  5. OPSUMIT [Suspect]
     Active Substance: MACITENTAN
     Indication: PULMONARY ARTERIAL HYPERTENSION
     Dosage: 10 MG, QD
     Route: 048
     Dates: start: 20160205
  6. DILTIAZEM. [Concomitant]
     Active Substance: DILTIAZEM
  7. WARFARIN [Concomitant]
     Active Substance: WARFARIN

REACTIONS (2)
  - Weight increased [Unknown]
  - Therapy change [Unknown]

NARRATIVE: CASE EVENT DATE: 201810
